FAERS Safety Report 11321592 (Version 4)
Quarter: 2015Q3

REPORT INFORMATION
  Report Type: Spontaneous
  Country: US (occurrence: US)
  Receive Date: 20150729
  Receipt Date: 20150923
  Transmission Date: 20151125
  Serious: Yes (Hospitalization)
  Sender: FDA-Public Use
  Company Number: US-PFIZER INC-2015250187

PATIENT
  Age: 73 Year
  Sex: Female
  Weight: 73 kg

DRUGS (11)
  1. ELIQUIS [Concomitant]
     Active Substance: APIXABAN
     Indication: ANTICOAGULANT THERAPY
     Dosage: 5 MG, 2X/DAY
  2. LOPRESSOR [Concomitant]
     Active Substance: METOPROLOL TARTRATE
     Indication: TACHYCARDIA
     Dosage: 25 MG, 2X/DAY
     Dates: end: 20150812
  3. VITAMIN D [Concomitant]
     Active Substance: CHOLECALCIFEROL
     Dosage: 5000 IU, WEEKLY (ONCE A WEEK ON WEDNESDAY)
  4. ROBAXIN [Concomitant]
     Active Substance: METHOCARBAMOL
     Indication: MUSCLE RELAXANT THERAPY
     Dosage: 750 MG, 2X/DAY
  5. CALCIUM [Concomitant]
     Active Substance: CALCIUM
     Dosage: 600, 2X/DAY
  6. VITAMIN D [Concomitant]
     Active Substance: CHOLECALCIFEROL
     Dosage: 3000 IU, 2X/DAY
  7. LOPRESSOR [Concomitant]
     Active Substance: METOPROLOL TARTRATE
     Dosage: DECREASED
     Dates: start: 20150813
  8. ELIQUIS [Concomitant]
     Active Substance: APIXABAN
     Dosage: INCREASED
  9. GABAPENTIN. [Concomitant]
     Active Substance: GABAPENTIN
     Dosage: UNK
  10. LYRICA [Suspect]
     Active Substance: PREGABALIN
     Indication: PAIN
     Dosage: 75 MG, 2X/DAY
     Dates: start: 20150721
  11. LYRICA [Suspect]
     Active Substance: PREGABALIN
     Indication: NEURALGIA
     Dosage: 75 MG, 1X/DAY
     Dates: start: 201507

REACTIONS (3)
  - Condition aggravated [Not Recovered/Not Resolved]
  - Atrial fibrillation [Not Recovered/Not Resolved]
  - Fluid overload [Unknown]

NARRATIVE: CASE EVENT DATE: 20150813
